FAERS Safety Report 21693056 (Version 1)
Quarter: 2022Q4

REPORT INFORMATION
  Report Type: Spontaneous
  Country: US (occurrence: US)
  Receive Date: 20221207
  Receipt Date: 20221207
  Transmission Date: 20230113
  Serious: Yes (Hospitalization, Other)
  Sender: FDA-Public Use
  Company Number: US-STRIDES ARCOLAB LIMITED-2022SP016294

PATIENT
  Age: 64 Year
  Sex: Male

DRUGS (3)
  1. PREDNISOLONE [Suspect]
     Active Substance: PREDNISOLONE
     Indication: Lung transplant
     Dosage: UNK
     Route: 065
  2. MYCOPHENOLATE MOFETIL [Suspect]
     Active Substance: MYCOPHENOLATE MOFETIL
     Indication: Lung transplant
     Dosage: UNK
     Route: 065
  3. TACROLIMUS [Suspect]
     Active Substance: TACROLIMUS
     Indication: Lung transplant
     Dosage: UNK
     Route: 065

REACTIONS (8)
  - Malacoplakia [Recovered/Resolved]
  - Pleural adhesion [Recovered/Resolved]
  - Pulmonary air leakage [Recovered/Resolved]
  - Septic shock [Recovered/Resolved]
  - Escherichia infection [Unknown]
  - Pseudomonas infection [Unknown]
  - Cytomegalovirus viraemia [Unknown]
  - Off label use [Unknown]
